FAERS Safety Report 15125460 (Version 1)
Quarter: 2018Q3

REPORT INFORMATION
  Report Type: Spontaneous
  Country: US (occurrence: US)
  Receive Date: 20180710
  Receipt Date: 20180710
  Transmission Date: 20181010
  Serious: Yes (Hospitalization)
  Sender: FDA-Public Use
  Company Number: US-ARALEZ PHARMACEUTICALS R+D INC.-2018-ARA-001722

PATIENT
  Age: 85 Year
  Sex: Female

DRUGS (20)
  1. TAGRISSO [Suspect]
     Active Substance: OSIMERTINIB
     Indication: METASTASES TO LUNG
     Dosage: 80 MG, QD
     Route: 048
     Dates: start: 20170315
  2. ZOFRAN [Concomitant]
     Active Substance: ONDANSETRON HYDROCHLORIDE
  3. TAGRISSO [Suspect]
     Active Substance: OSIMERTINIB
     Indication: LUNG NEOPLASM MALIGNANT
  4. METHOTREXATE. [Concomitant]
     Active Substance: METHOTREXATE
     Indication: RHEUMATOID ARTHRITIS
  5. PRILOSEC [Suspect]
     Active Substance: OMEPRAZOLE MAGNESIUM
     Indication: PRODUCT USED FOR UNKNOWN INDICATION
     Route: 048
  6. LEUCOVORIN CALCIUM. [Concomitant]
     Active Substance: LEUCOVORIN CALCIUM
  7. FOLIC ACID. [Concomitant]
     Active Substance: FOLIC ACID
  8. CEPHALEXIN                         /00145501/ [Concomitant]
     Active Substance: CEPHALEXIN
  9. CULTOKINASE [Concomitant]
  10. LOPRESSOR [Concomitant]
     Active Substance: METOPROLOL TARTRATE
  11. FUROSEMIDE. [Concomitant]
     Active Substance: FUROSEMIDE
  12. CALTRATE [Concomitant]
     Active Substance: CALCIUM CARBONATE
  13. ZANAFLEX [Concomitant]
     Active Substance: TIZANIDINE HYDROCHLORIDE
  14. BENADRYL [Concomitant]
     Active Substance: DIPHENHYDRAMINE HYDROCHLORIDE
  15. CARAFATE [Concomitant]
     Active Substance: SUCRALFATE
  16. PLAQUENIL                          /00072602/ [Concomitant]
     Active Substance: HYDROXYCHLOROQUINE DIPHOSPHATE
  17. METOPROLOL SUCCINATE. [Suspect]
     Active Substance: METOPROLOL SUCCINATE
     Indication: CARDIAC FAILURE
     Dosage: 25 MG, QD
     Route: 048
     Dates: start: 2015
  18. LASIX [Concomitant]
     Active Substance: FUROSEMIDE
  19. NORCO [Concomitant]
     Active Substance: ACETAMINOPHEN\HYDROCODONE BITARTRATE
  20. PRESERVISION [Concomitant]
     Active Substance: MINERALS\VITAMINS

REACTIONS (17)
  - Limb injury [Recovering/Resolving]
  - Bronchitis [Unknown]
  - Fluid retention [Unknown]
  - Wound complication [Recovering/Resolving]
  - Cataract [Unknown]
  - Rheumatoid arthritis [Unknown]
  - Herpes zoster [Unknown]
  - Dyspnoea [Unknown]
  - Insomnia [Unknown]
  - Vision blurred [Unknown]
  - Pneumonia [Unknown]
  - Cardiac failure [Unknown]
  - Nausea [Unknown]
  - Pain [Recovering/Resolving]
  - Asthenia [Unknown]
  - Dizziness [Unknown]
  - Diarrhoea [Recovering/Resolving]

NARRATIVE: CASE EVENT DATE: 2015
